FAERS Safety Report 24765065 (Version 3)
Quarter: 2025Q3

REPORT INFORMATION
  Report Type: Spontaneous
  Country: US (occurrence: US)
  Receive Date: 20241223
  Receipt Date: 20250810
  Transmission Date: 20251021
  Serious: No
  Sender: ALEXION PHARMACEUTICALS
  Company Number: US-AstraZeneca-CH-00768887AP

PATIENT
  Sex: Female

DRUGS (1)
  1. BREZTRI [Suspect]
     Active Substance: BUDESONIDE\FORMOTEROL\GLYCOPYRROLATE
     Dosage: 160 MICROGRAM, BID ,160/9/4.8 MCG, 120 INHALATIONS
     Route: 065
     Dates: start: 20241010

REACTIONS (3)
  - Productive cough [Unknown]
  - Device use error [Unknown]
  - Product dose omission issue [Unknown]
